FAERS Safety Report 9617773 (Version 2)
Quarter: 2013Q4

REPORT INFORMATION
  Report Type: Spontaneous
  Country: CA (occurrence: None)
  Receive Date: 20131009
  Receipt Date: 20131016
  Transmission Date: 20140711
  Serious: Yes (Other)
  Sender: FDA-Public Use
  Company Number: 2013-CA-000007

PATIENT
  Age: 19 Year
  Sex: Male

DRUGS (6)
  1. ERYTHROMYCIN [Suspect]
     Indication: PHARYNGITIS BACTERIAL
     Dosage: 800 MG 2HRS BEFORE SURGERY ORAL (400 MG, 6 HOURS POST INITIAL DOSE)
     Route: 048
  2. ERYTHROMYCIN [Suspect]
     Indication: TOOTH EXTRACTION
     Dosage: 800 MG 2HRS BEFORE SURGERY ORAL (400 MG, 6 HOURS POST INITIAL DOSE)
     Route: 048
  3. ERYTHROMYCIN [Suspect]
     Indication: PROPHYLAXIS
     Dosage: 800 MG 2HRS BEFORE SURGERY ORAL (400 MG, 6 HOURS POST INITIAL DOSE)
     Route: 048
  4. ERYTHROMYCIN [Suspect]
     Indication: SURGERY
     Dosage: 800 MG 2HRS BEFORE SURGERY ORAL (400 MG, 6 HOURS POST INITIAL DOSE)
     Route: 048
  5. ACETAMINOPHEN (+) CODEINE [Suspect]
     Indication: PHARYNGITIS BACTERIAL
     Dosage: 300 MG / 30 MG (30 TABLETS OVER 1 WEEK)
  6. CAFFEINE [Concomitant]

REACTIONS (6)
  - Psychotic disorder [None]
  - Hallucination, visual [None]
  - Mania [None]
  - Affective disorder [None]
  - Delirium [None]
  - Drug interaction [None]
